FAERS Safety Report 7742797-9 (Version None)
Quarter: 2011Q3

REPORT INFORMATION
  Report Type: 
  Country: None (occurrence: None)
  Receive Date: 20110912
  Receipt Date: 20110902
  Transmission Date: 20111222
  Serious: Yes (Other)
  Sender: FDA-Public Use
  Company Number: US-JNJFOC-20110901023

PATIENT
  Sex: Male
  Weight: 110.68 kg

DRUGS (10)
  1. RISPERDAL [Suspect]
     Indication: MENTAL DISORDER
     Route: 048
     Dates: start: 20101001
  2. DEPAKOTE [Concomitant]
     Indication: MOOD SWINGS
     Route: 065
  3. OXYCODONE HCL [Concomitant]
     Indication: PAIN
     Route: 065
  4. CELEXA [Concomitant]
     Indication: DEPRESSION
     Route: 065
  5. BYETTA [Concomitant]
     Indication: DIABETES MELLITUS
     Route: 065
  6. CETIRIZINE HCL [Concomitant]
     Indication: HYPERSENSITIVITY
     Route: 065
  7. XANAX [Concomitant]
     Indication: ANXIETY
     Route: 065
  8. ACTOS [Concomitant]
     Indication: DIABETES MELLITUS
     Route: 065
  9. TESTIM [Concomitant]
     Indication: ANDROGEN DEFICIENCY
     Route: 065
  10. CRESTOR [Concomitant]
     Indication: HYPERLIPIDAEMIA
     Route: 065

REACTIONS (1)
  - GYNAECOMASTIA [None]
